FAERS Safety Report 7686039-1 (Version None)
Quarter: 2011Q3

REPORT INFORMATION
  Report Type: 
  Country: None (occurrence: None)
  Receive Date: 20110816
  Receipt Date: 20110810
  Transmission Date: 20111222
  Serious: No
  Sender: FDA-Public Use
  Company Number: US-PFIZER INC-2011100627

PATIENT
  Sex: Male

DRUGS (6)
  1. ACETYLSALICYLIC ACID [Concomitant]
     Dosage: 81 MG, UNK
  2. CENTRUM SILVER [Concomitant]
     Dosage: UNK
  3. CADUET [Concomitant]
     Indication: HYPERTENSION
     Dosage: UNK
  4. VALSARTAN [Concomitant]
     Indication: HYPERTENSION
     Dosage: UNK
  5. TOVIAZ [Suspect]
     Indication: HYPERTONIC BLADDER
     Dosage: 4 MG, DAILY
     Route: 048
     Dates: start: 20110401
  6. PROSCAR [Concomitant]
     Dosage: UNK

REACTIONS (2)
  - DYSURIA [None]
  - HEAD DISCOMFORT [None]
